FAERS Safety Report 8571829-3 (Version None)
Quarter: 2012Q3

REPORT INFORMATION
  Report Type: 
  Country: None (occurrence: None)
  Receive Date: 20120806
  Receipt Date: 20120731
  Transmission Date: 20120928
  Serious: Yes (Hospitalization)
  Sender: FDA-Public Use
  Company Number: US-B.I. PHARMACEUTICALS,INC./RIDGEFIELD-2012-BP-17250BP

PATIENT
  Age: 90 Year
  Sex: Female

DRUGS (10)
  1. PRAVASTATIN [Concomitant]
     Indication: BLOOD CHOLESTEROL INCREASED
  2. CYMBALTA [Concomitant]
     Indication: DEPRESSION
  3. AGGRENOX [Suspect]
     Indication: CEREBROVASCULAR ACCIDENT PROPHYLAXIS
     Route: 048
     Dates: start: 20020101
  4. TRICOR [Concomitant]
  5. LYRICA [Concomitant]
  6. PLAVIX [Concomitant]
     Indication: CEREBROVASCULAR ACCIDENT PROPHYLAXIS
  7. DIOVAN [Concomitant]
     Indication: HYPERTENSION
  8. SYNTHROID [Concomitant]
     Indication: HYPOTHYROIDISM
  9. XALATAN [Concomitant]
     Indication: GLAUCOMA
  10. ALPRAZOLAM [Concomitant]
     Indication: ANXIETY

REACTIONS (3)
  - VIRAL INFECTION [None]
  - DYSPHAGIA [None]
  - URINARY TRACT INFECTION [None]
